FAERS Safety Report 6241994-1 (Version None)
Quarter: 2009Q2

REPORT INFORMATION
  Report Type: 
  Country: None (occurrence: None)
  Receive Date: 20090622
  Receipt Date: 20090604
  Transmission Date: 20091009
  Serious: Yes (Death)
  Sender: FDA-Public Use
  Company Number: 2009AL003735

PATIENT
  Age: 91 Year
  Sex: Female
  Weight: 57.1532 kg

DRUGS (13)
  1. DIGOXIN [Suspect]
  2. ZESTRIL [Concomitant]
  3. SYNTHROID [Concomitant]
  4. ISORDIL [Concomitant]
  5. ACTONEL [Concomitant]
  6. PREDNISONE TAB [Concomitant]
  7. METHOTREXATE [Concomitant]
  8. FOLIC ACID [Concomitant]
  9. VICODIN [Concomitant]
  10. ZINC [Concomitant]
  11. DARVOCET [Concomitant]
  12. PROMETHAZINE [Concomitant]
  13. LEVOTHYROXINE SODIUM [Concomitant]

REACTIONS (5)
  - ANGINA PECTORIS [None]
  - CARDIAC FAILURE CONGESTIVE [None]
  - CORONARY ARTERY DISEASE [None]
  - DYSPNOEA [None]
  - RESPIRATORY FAILURE [None]
